FAERS Safety Report 22359633 (Version 1)
Quarter: 2023Q2

REPORT INFORMATION
  Report Type: Spontaneous
  Country: US (occurrence: None)
  Receive Date: 20230523
  Receipt Date: 20230523
  Transmission Date: 20230722
  Serious: No
  Sender: FDA-Public Use
  Company Number: None

PATIENT
  Sex: Male

DRUGS (7)
  1. CAPECITABINE [Suspect]
     Active Substance: CAPECITABINE
     Indication: Rectal cancer
     Dosage: OTHER QUANTITY : 2T AFTER MEAL M-F;?FREQUENCY : TWICE A DAY;?
     Route: 048
     Dates: start: 202303
  2. DEXAMETHASONE [Concomitant]
     Active Substance: DEXAMETHASONE
  3. MULTIVITAMIN [Concomitant]
  4. ONDANSETRON [Concomitant]
  5. PROCHLORPERAZINE [Concomitant]
     Active Substance: PROCHLORPERAZINE
  6. CARAFATE [Concomitant]
     Active Substance: SUCRALFATE
  7. HYDROCORTISONE [Concomitant]

REACTIONS (1)
  - Drug ineffective [None]
